FAERS Safety Report 13524572 (Version 5)
Quarter: 2017Q3

REPORT INFORMATION
  Report Type: Report from Study
  Country: ZA (occurrence: ZA)
  Receive Date: 20170508
  Receipt Date: 20170822
  Transmission Date: 20171127
  Serious: Yes (Hospitalization, Other)
  Sender: FDA-Public Use
  Company Number: ZA-BRISTOL-MYERS SQUIBB COMPANY-BMS-2017-033786

PATIENT
  Age: 65 Year
  Sex: Female

DRUGS (1)
  1. ABATACEPT [Suspect]
     Active Substance: ABATACEPT
     Indication: RHEUMATOID ARTHRITIS
     Dosage: 125 MG, QWK
     Route: 058
     Dates: start: 20170329

REACTIONS (12)
  - Oedema [Unknown]
  - Malaise [Unknown]
  - Peripheral swelling [Unknown]
  - Pain [Recovered/Resolved]
  - Nausea [Recovered/Resolved]
  - Lower respiratory tract infection [Recovered/Resolved]
  - Asthenia [Unknown]
  - Tremor [Unknown]
  - Decreased appetite [Unknown]
  - Drug ineffective [Not Recovered/Not Resolved]
  - Swelling [Recovered/Resolved]
  - Insomnia [Recovered/Resolved]

NARRATIVE: CASE EVENT DATE: 20170329
